FAERS Safety Report 11891354 (Version 3)
Quarter: 2016Q1

REPORT INFORMATION
  Report Type: Spontaneous
  Country: FR (occurrence: FR)
  Receive Date: 20160106
  Receipt Date: 20160215
  Transmission Date: 20160526
  Serious: Yes (Other)
  Sender: FDA-Public Use
  Company Number: FR-ROCHE-1689387

PATIENT
  Age: 69 Year
  Sex: Male

DRUGS (12)
  1. GEMZAR [Suspect]
     Active Substance: GEMCITABINE HYDROCHLORIDE
     Indication: CHOLANGIOCARCINOMA
     Route: 042
     Dates: start: 20151124
  2. DOLIPRANE [Concomitant]
     Active Substance: ACETAMINOPHEN
  3. INEXIUM [Concomitant]
     Active Substance: ESOMEPRAZOLE
  4. ATARAX [Concomitant]
     Active Substance: HYDROXYZINE\HYDROXYZINE HYDROCHLORIDE
  5. XELODA [Suspect]
     Active Substance: CAPECITABINE
     Indication: CHOLANGIOCARCINOMA
     Route: 048
     Dates: start: 20151124
  6. DELURSAN [Concomitant]
     Active Substance: URSODIOL
  7. UROREC [Concomitant]
     Active Substance: SILODOSIN
  8. CREON [Concomitant]
     Active Substance: PANCRELIPASE AMYLASE\PANCRELIPASE LIPASE\PANCRELIPASE PROTEASE
  9. OXYCONTIN [Concomitant]
     Active Substance: OXYCODONE HYDROCHLORIDE
  10. OXYNORM [Concomitant]
     Active Substance: OXYCODONE HYDROCHLORIDE
  11. SPASFON (FRANCE) [Concomitant]
     Active Substance: PHLOROGLUCINOL
  12. TRIFLUCAN 50 [Suspect]
     Active Substance: FLUCONAZOLE
     Indication: PRODUCT USED FOR UNKNOWN INDICATION
     Dosage: 50 MG/5 ML
     Route: 048
     Dates: start: 20151201, end: 20151208

REACTIONS (2)
  - Rash maculo-papular [Recovered/Resolved]
  - Prurigo [Recovered/Resolved]

NARRATIVE: CASE EVENT DATE: 20151205
